FAERS Safety Report 5190592-X (Version None)
Quarter: 2006Q4

REPORT INFORMATION
  Report Type: 
  Country: None (occurrence: None)
  Receive Date: 20061222
  Receipt Date: 20060821
  Transmission Date: 20070319
  Serious: Yes (Other)
  Sender: FDA-Public Use
  Company Number: US-BRISTOL-MYERS SQUIBB COMPANY-13484696

PATIENT
  Age: 43 Year
  Sex: Male

DRUGS (3)
  1. ORENCIA [Suspect]
     Indication: RHEUMATOID ARTHRITIS
     Route: 042
     Dates: start: 20060811
  2. PREDNISONE TAB [Concomitant]
  3. ARAVA [Concomitant]

REACTIONS (1)
  - URTICARIA [None]
